FAERS Safety Report 15765271 (Version 1)
Quarter: 2018Q4

REPORT INFORMATION
  Report Type: Spontaneous
  Country: FR (occurrence: FR)
  Receive Date: 20181227
  Receipt Date: 20181227
  Transmission Date: 20190205
  Serious: Yes (Death)
  Sender: FDA-Public Use
  Company Number: FR-SAKK-2018SA389036AA

PATIENT
  Age: 73 Year
  Sex: Male
  Weight: 61 kg

DRUGS (11)
  1. PLAVIX [Suspect]
     Active Substance: CLOPIDOGREL BISULFATE
     Indication: ISCHAEMIC STROKE
     Dosage: 1 DF, QD
     Route: 048
     Dates: start: 20181019, end: 20181022
  2. UROREC [Concomitant]
     Active Substance: SILODOSIN
  3. NISISCO [Concomitant]
     Active Substance: HYDROCHLOROTHIAZIDE\VALSARTAN
  4. TAHOR [Concomitant]
     Active Substance: ATORVASTATIN CALCIUM
  5. LANTUS [Concomitant]
     Active Substance: INSULIN GLARGINE
  6. HUMALOG [Concomitant]
     Active Substance: INSULIN LISPRO
  7. KARDEGIC [Interacting]
     Active Substance: ASPIRIN DL-LYSINE
     Indication: ISCHAEMIC STROKE
     Dosage: 1 DF, QD
     Route: 048
     Dates: start: 20181019, end: 20181022
  8. INEXIUM [ESOMEPRAZOLE SODIUM] [Concomitant]
     Active Substance: ESOMEPRAZOLE SODIUM
  9. VITAMIN B12 [Concomitant]
     Active Substance: CYANOCOBALAMIN
  10. UVEDOSE [Concomitant]
     Active Substance: CHOLECALCIFEROL
  11. EUROBIOL [AMYLASE;CHYMOTRYPSIN;LIPASE;PANCREAS POWDER;TRYPSIN] [Concomitant]

REACTIONS (4)
  - Intracranial mass [Fatal]
  - Subdural haematoma [Fatal]
  - Brain injury [Fatal]
  - Drug interaction [Fatal]

NARRATIVE: CASE EVENT DATE: 20181019
